FAERS Safety Report 6818272-2 (Version None)
Quarter: 2010Q3

REPORT INFORMATION
  Report Type: 
  Country: None (occurrence: None)
  Receive Date: 20100706
  Receipt Date: 20070702
  Transmission Date: 20110219
  Serious: Yes (Other)
  Sender: FDA-Public Use
  Company Number: US-PFIZER INC-2007054886

PATIENT
  Sex: Female
  Weight: 12.7 kg

DRUGS (1)
  1. AZITHROMYCIN [Suspect]
     Indication: EAR INFECTION
     Dates: start: 20070626

REACTIONS (2)
  - BOWEL MOVEMENT IRREGULARITY [None]
  - SKIN REACTION [None]
